FAERS Safety Report 7690492-7 (Version None)
Quarter: 2011Q3

REPORT INFORMATION
  Report Type: 
  Country: None (occurrence: None)
  Receive Date: 20110818
  Receipt Date: 20110811
  Transmission Date: 20111222
  Serious: Yes (Hospitalization)
  Sender: FDA-Public Use
  Company Number: DK-PFIZER INC-2011185346

PATIENT
  Age: 48 Year
  Sex: Male
  Weight: 91 kg

DRUGS (1)
  1. SUNITINIB MALATE [Suspect]
     Indication: METASTATIC RENAL CELL CARCINOMA
     Dosage: 50 MG, UNK
     Dates: start: 20090617, end: 20090826

REACTIONS (6)
  - HYPOTHYROIDISM [None]
  - PORTAL VEIN THROMBOSIS [None]
  - NAUSEA [None]
  - VOMITING [None]
  - DEHYDRATION [None]
  - HYPERTENSION [None]
